FAERS Safety Report 9285581 (Version 1)
Quarter: 2013Q2

REPORT INFORMATION
  Report Type: Spontaneous
  Country: NZ (occurrence: NZ)
  Receive Date: 20130513
  Receipt Date: 20130513
  Transmission Date: 20140414
  Serious: Yes (Other)
  Sender: FDA-Public Use
  Company Number: PHHY2013NZ046074

PATIENT
  Age: 66 Year
  Sex: Female

DRUGS (3)
  1. ZOLEDRONIC ACID [Suspect]
     Dosage: UNK UKN, UNK
  2. ESCITALOPRAM [Concomitant]
     Dosage: UNK UKN, UNK
     Route: 048
  3. OMPRAZOLE [Concomitant]
     Dosage: UNK UKN, UNK
     Route: 048

REACTIONS (5)
  - Syncope [Unknown]
  - Thrombocytopenia [Unknown]
  - Diarrhoea [Unknown]
  - Myalgia [Unknown]
  - Vomiting [Unknown]
